FAERS Safety Report 7942142-X (Version None)
Quarter: 2011Q4

REPORT INFORMATION
  Report Type: 
  Country: None (occurrence: None)
  Receive Date: 20111122
  Receipt Date: 20111109
  Transmission Date: 20120403
  Serious: Yes (Hospitalization)
  Sender: FDA-Public Use
  Company Number: TPG2011A02967

PATIENT

DRUGS (8)
  1. ACETYLSALICYLIC ACID SRT [Concomitant]
  2. ACTOS [Suspect]
     Indication: DIABETES MELLITUS
     Dosage: 15 MG (15 MG,1-0-0) PER ORAL, 30 MG (30  MG,1-0-0) PER ORAL
     Route: 048
     Dates: start: 20061012, end: 20090101
  3. ACTOS [Suspect]
     Indication: DIABETES MELLITUS
     Dosage: 15 MG (15 MG,1-0-0) PER ORAL, 30 MG (30  MG,1-0-0) PER ORAL
     Route: 048
     Dates: start: 20090702, end: 20110912
  4. OMEPRAZOLE [Concomitant]
  5. MODURETIC 5-50 [Concomitant]
  6. NOVOMIX 30 PEN (INSULIN ASPART, INSULIN ASPART PROTAMINE (CRYSTALLINE) [Concomitant]
  7. ATORVASTATIN [Concomitant]
  8. CONCOR COR (BISOPROLOL) [Concomitant]

REACTIONS (2)
  - BLADDER CANCER [None]
  - PROSTATE CANCER [None]
